FAERS Safety Report 9222886 (Version 2)
Quarter: 2013Q4

REPORT INFORMATION
  Report Type: Spontaneous
  Country: FR (occurrence: FR)
  Receive Date: 20130410
  Receipt Date: 20131002
  Transmission Date: 20140711
  Serious: Yes (Other)
  Sender: FDA-Public Use
  Company Number: FR-ROCHE-1212406

PATIENT
  Age: 79 Year
  Sex: Male

DRUGS (5)
  1. ACTILYSE [Suspect]
     Indication: PRODUCT USED FOR UNKNOWN INDICATION
     Route: 042
     Dates: start: 20130314, end: 20130314
  2. METFORMIN [Concomitant]
     Route: 065
  3. ALLOPURINOL [Concomitant]
     Route: 065
  4. KERLONE [Concomitant]
  5. TAHOR [Concomitant]

REACTIONS (2)
  - Haematemesis [Recovered/Resolved]
  - Anaemia [Recovered/Resolved]
